FAERS Safety Report 16910243 (Version 1)
Quarter: 2019Q4

REPORT INFORMATION
  Report Type: Spontaneous
  Country: JP (occurrence: JP)
  Receive Date: 20191011
  Receipt Date: 20191011
  Transmission Date: 20200122
  Serious: Yes (Other)
  Sender: FDA-Public Use
  Company Number: JP-PFIZER INC-2019367921

PATIENT
  Age: 84 Year
  Sex: Male

DRUGS (13)
  1. LYRICA [Suspect]
     Active Substance: PREGABALIN
     Dosage: 150 MG, DAILY
  2. TAKECAB [Suspect]
     Active Substance: VONOPRAZAN FUMURATE
     Dosage: 1 DF, 1X/DAY
  3. LYRICA [Suspect]
     Active Substance: PREGABALIN
     Dosage: 25 MG, 2X/DAY (MORNING AND EVENING)
     Route: 048
     Dates: start: 20181211
  4. BLOPRESS [Suspect]
     Active Substance: CANDESARTAN CILEXETIL
     Dosage: 1 DF, UNK
  5. NORVASC [Suspect]
     Active Substance: AMLODIPINE BESYLATE
     Dosage: 1 DF, UNK
  6. VOGLIBOSE 0.2MG PFIZER [Suspect]
     Active Substance: VOGLIBOSE
     Dosage: 1 DF, 3X/DAY
  7. TRAZENTA [Suspect]
     Active Substance: LINAGLIPTIN
     Dosage: 1 DF, UNK
  8. GLIBENCLAMIDE [Suspect]
     Active Substance: GLYBURIDE
     Dosage: 1 DF, 1X/DAY
  9. ODYNE [Suspect]
     Active Substance: FLUTAMIDE
     Dosage: 1 DF, 3X/DAY
  10. CELECOX [Suspect]
     Active Substance: CELECOXIB
     Dosage: 1 DF, 2X/DAY
  11. LYRICA [Suspect]
     Active Substance: PREGABALIN
     Dosage: 25 MG, 1X/DAY
     Route: 048
  12. METFORMIN HYDROCHLORIDE MT PFIZER [Suspect]
     Active Substance: METFORMIN HYDROCHLORIDE
     Dosage: 1 DF, 2X/DAY
  13. LIVALO [Suspect]
     Active Substance: PITAVASTATIN CALCIUM
     Dosage: 1 DF, 1X/DAY

REACTIONS (2)
  - Cataract [Unknown]
  - Visual impairment [Recovered/Resolved]

NARRATIVE: CASE EVENT DATE: 201908
